FAERS Safety Report 4521661-2 (Version None)
Quarter: 2004Q4

REPORT INFORMATION
  Report Type: 
  Country: None (occurrence: None)
  Receive Date: 20041208
  Receipt Date: 20041208
  Transmission Date: 20050328
  Serious: Yes (Death)
  Sender: FDA-Public Use
  Company Number: None

PATIENT
  Age: 23 Year
  Sex: Male
  Weight: 65.7716 kg

DRUGS (1)
  1. ACCUTANE [Suspect]
     Indication: FACE OEDEMA
     Dosage: 80 MG (2 X 40 MG) DAILY
     Dates: start: 20040101, end: 20041020

REACTIONS (2)
  - COMPLETED SUICIDE [None]
  - FEELING ABNORMAL [None]
